FAERS Safety Report 5959035-X (Version None)
Quarter: 2008Q4

REPORT INFORMATION
  Report Type: 
  Country: None (occurrence: None)
  Receive Date: 20081118
  Receipt Date: 20081118
  Transmission Date: 20090506
  Serious: Yes (Other)
  Sender: FDA-Public Use
  Company Number: None

PATIENT
  Sex: Male

DRUGS (1)
  1. PHENYTOIN [Suspect]
     Indication: EPILEPSY
     Dosage: 600MG DAILY PO
     Route: 048
     Dates: start: 20080201

REACTIONS (2)
  - CONVULSION [None]
  - THERAPEUTIC RESPONSE UNEXPECTED WITH DRUG SUBSTITUTION [None]
